FAERS Safety Report 23677006 (Version 1)
Quarter: 2024Q1

REPORT INFORMATION
  Report Type: Spontaneous
  Country: SA (occurrence: SA)
  Receive Date: 20240327
  Receipt Date: 20240327
  Transmission Date: 20240410
  Serious: Yes (Hospitalization, Other)
  Sender: FDA-Public Use
  Company Number: SA-Jerome Stevens Pharmaceuticals, Inc.-2154907

PATIENT
  Age: 17 Year
  Sex: Male

DRUGS (2)
  1. DIGOXIN [Suspect]
     Active Substance: DIGOXIN
     Route: 048
  2. Not provided [Concomitant]

REACTIONS (10)
  - Intentional overdose [Recovered/Resolved]
  - Coma scale abnormal [Recovered/Resolved]
  - Xanthopsia [Recovered/Resolved]
  - Blood potassium decreased [Recovered/Resolved]
  - Delirium [Recovered/Resolved]
  - Atrioventricular block first degree [Recovered/Resolved]
  - Cardioactive drug level increased [Recovered/Resolved]
  - Sinus tachycardia [Recovered/Resolved]
  - Tonic clonic movements [Recovered/Resolved]
  - Suicide attempt [Recovered/Resolved]
